FAERS Safety Report 9909724 (Version 3)
Quarter: 2015Q3

REPORT INFORMATION
  Report Type: Spontaneous
  Country: US (occurrence: US)
  Receive Date: 20140219
  Receipt Date: 20150811
  Transmission Date: 20151125
  Serious: No
  Sender: FDA-Public Use
  Company Number: US-GILEAD-2012-0049365

PATIENT
  Age: 67 Year
  Sex: Female

DRUGS (9)
  1. LETAIRIS [Suspect]
     Active Substance: AMBRISENTAN
     Indication: PRODUCT USED FOR UNKNOWN INDICATION
     Dosage: 5 MG, UNK
     Route: 048
     Dates: start: 20100329
  2. PRIMIDONE. [Concomitant]
     Active Substance: PRIMIDONE
  3. ASPIRIN. [Concomitant]
     Active Substance: ASPIRIN
  4. REVATIO [Concomitant]
     Active Substance: SILDENAFIL CITRATE
  5. HERBAL PRODUCT [Concomitant]
  6. SYNTHROID [Concomitant]
     Active Substance: LEVOTHYROXINE SODIUM
  7. OMEPRAZOLE. [Concomitant]
     Active Substance: OMEPRAZOLE
  8. OMEGA 3-6-9 [Concomitant]
     Active Substance: FISH OIL
  9. VITAMIN D                          /00107901/ [Concomitant]
     Active Substance: ERGOCALCIFEROL

REACTIONS (2)
  - Dysphagia [Unknown]
  - Gastrooesophageal reflux disease [Unknown]
